FAERS Safety Report 5793520-9 (Version None)
Quarter: 2008Q2

REPORT INFORMATION
  Report Type: 
  Country: None (occurrence: None)
  Receive Date: 20080627
  Receipt Date: 20080617
  Transmission Date: 20081010
  Serious: Yes (Hospitalization)
  Sender: FDA-Public Use
  Company Number: FR-JNJFOC-20080600004

PATIENT
  Sex: Female

DRUGS (7)
  1. IXPRIM [Suspect]
     Indication: PAIN
     Route: 048
  2. ARICEPT [Suspect]
     Indication: DEMENTIA ALZHEIMER'S TYPE
     Route: 048
     Dates: start: 20070703, end: 20080118
  3. CO-APROVAL [Suspect]
     Indication: HYPERTENSION
     Route: 048
  4. ZANIDIP [Suspect]
     Indication: HYPERTENSION
     Route: 048
  5. EFFEXOR [Concomitant]
     Indication: DEPRESSION
     Route: 065
  6. RANITIDINE HCL [Concomitant]
     Route: 065
  7. PLAVIX [Concomitant]
     Route: 065

REACTIONS (2)
  - MALAISE [None]
  - MICROCYTIC ANAEMIA [None]
